FAERS Safety Report 5522220-5 (Version None)
Quarter: 2007Q4

REPORT INFORMATION
  Report Type: 
  Country: None (occurrence: None)
  Receive Date: 20071120
  Receipt Date: 20071106
  Transmission Date: 20080405
  Serious: Yes (Hospitalization, Other)
  Sender: FDA-Public Use
  Company Number: US-ELI_LILLY_AND_COMPANY-US200707003111

PATIENT
  Sex: Female

DRUGS (2)
  1. FORTEO [Suspect]
     Indication: OSTEOPOROSIS
     Dosage: UNK, UNK
  2. FORTEO [Suspect]
     Dosage: UNK, UNK
     Dates: start: 20070704, end: 20071010

REACTIONS (8)
  - DECREASED ACTIVITY [None]
  - FALL [None]
  - INJECTION SITE HAEMORRHAGE [None]
  - LOWER LIMB FRACTURE [None]
  - MUSCULAR WEAKNESS [None]
  - PELVIC FRACTURE [None]
  - RESORPTION BONE INCREASED [None]
  - UPPER LIMB FRACTURE [None]
